FAERS Safety Report 6121909-7 (Version None)
Quarter: 2009Q1

REPORT INFORMATION
  Report Type: 
  Country: None (occurrence: None)
  Receive Date: 20090313
  Receipt Date: 20090226
  Transmission Date: 20090719
  Serious: Yes (Hospitalization)
  Sender: FDA-Public Use
  Company Number: 2009S1003549

PATIENT
  Age: 87 Year
  Sex: Female

DRUGS (6)
  1. BISOPROLOL FUMARATE [Suspect]
     Indication: HYPERTENSION
     Dosage: 5 MG; TWICE A DAY; ORAL
     Route: 048
     Dates: start: 20070101, end: 20081025
  2. ACETYLSALICYLIC ACID [Concomitant]
  3. BENALAPRIL [Concomitant]
  4. FURORESE [Concomitant]
  5. LEVOTHYROXINE SODIUM [Concomitant]
  6. MUNOBAL [Concomitant]

REACTIONS (1)
  - BRADYARRHYTHMIA [None]
